FAERS Safety Report 17440476 (Version 1)
Quarter: 2020Q1

REPORT INFORMATION
  Report Type: Report from Study
  Country: CN (occurrence: CN)
  Receive Date: 20200220
  Receipt Date: 20200220
  Transmission Date: 20200409
  Serious: Yes (Other)
  Sender: FDA-Public Use
  Company Number: CN-PFIZER INC-2020073968

PATIENT

DRUGS (1)
  1. SIROLIMUS. [Suspect]
     Active Substance: SIROLIMUS
     Indication: APLASIA PURE RED CELL
     Dosage: UNK, DAILY (1-3 MG/DAY FOR AT LEAST 8 (8-24) MONTHS)

REACTIONS (1)
  - Liver abscess [Recovered/Resolved]
